FAERS Safety Report 7161428-2 (Version None)
Quarter: 2010Q4

REPORT INFORMATION
  Report Type: 
  Country: None (occurrence: None)
  Receive Date: 20101215
  Receipt Date: 20101201
  Transmission Date: 20110411
  Serious: Yes (Hospitalization, Other)
  Sender: FDA-Public Use
  Company Number: PHHY2010CA71229

PATIENT
  Sex: Female

DRUGS (4)
  1. CLOZARIL [Suspect]
     Indication: SCHIZOPHRENIA
     Dosage: UNK
     Dates: start: 20100915, end: 20101021
  2. CLOZARIL [Suspect]
     Dosage: 100  MG HS
     Route: 048
     Dates: start: 20100916
  3. RANITIDINE [Concomitant]
     Dosage: 150 MG, BID
     Route: 048
  4. SYNTHROID [Concomitant]
     Dosage: 25 UG
     Route: 048
     Dates: start: 20100828

REACTIONS (4)
  - MALAISE [None]
  - PERICARDIAL EFFUSION [None]
  - PLEURAL EFFUSION [None]
  - RESPIRATORY DISORDER [None]
